FAERS Safety Report 22014746 (Version 1)
Quarter: 2023Q1

REPORT INFORMATION
  Report Type: Other
  Country: CN (occurrence: None)
  Receive Date: 20230221
  Receipt Date: 20230221
  Transmission Date: 20230418
  Serious: Yes (Other)
  Sender: FDA-Public Use
  Company Number: CN-ROCHE-3290840

PATIENT

DRUGS (4)
  1. RITUXIMAB [Suspect]
     Active Substance: RITUXIMAB
     Indication: Lymphoma
     Dosage: ON DAY 1, 28 DAYS AS A CYCLE FOR 4 CYCLE
     Route: 042
  2. FLUDARABINE PHOSPHATE [Suspect]
     Active Substance: FLUDARABINE PHOSPHATE
     Indication: Lymphoma
     Dosage: ON DAYS 1 TO 3
     Route: 042
  3. MITOXANTRONE HYDROCHLORIDE [Suspect]
     Active Substance: MITOXANTRONE HYDROCHLORIDE
     Indication: Lymphoma
     Dosage: ON DAY 1, 28 DAYS AS A CYCLE FOR 4 CYCLE
     Route: 041
  4. DEXAMETHASONE SODIUM PHOSPHATE [Suspect]
     Active Substance: DEXAMETHASONE SODIUM PHOSPHATE
     Indication: Lymphoma
     Dosage: ON DAY 1 TO 5, 28 DAYS AS A CYCLE FOR 4 CYCLE
     Route: 041

REACTIONS (1)
  - Myelosuppression [Unknown]
